FAERS Safety Report 11082765 (Version 1)
Quarter: 2015Q2

REPORT INFORMATION
  Report Type: Spontaneous
  Country: US (occurrence: US)
  Receive Date: 20150501
  Receipt Date: 20150501
  Transmission Date: 20150821
  Serious: No
  Sender: FDA-Public Use
  Company Number: US-ABBVIE-14P-163-1259691-00

PATIENT
  Sex: Male
  Weight: 63.56 kg

DRUGS (9)
  1. ANDROGEL [Suspect]
     Active Substance: TESTOSTERONE
     Dosage: 2 PUMPS DAILY
     Route: 061
     Dates: start: 2014, end: 201406
  2. CYMBALTA [Concomitant]
     Active Substance: DULOXETINE HYDROCHLORIDE
     Indication: PRODUCT USED FOR UNKNOWN INDICATION
  3. ZYPREXA [Concomitant]
     Active Substance: OLANZAPINE
     Indication: PRODUCT USED FOR UNKNOWN INDICATION
  4. KLONOPIN [Concomitant]
     Active Substance: CLONAZEPAM
     Indication: PRODUCT USED FOR UNKNOWN INDICATION
     Dosage: PRN
  5. ANDROGEL [Suspect]
     Active Substance: TESTOSTERONE
     Indication: BLOOD TESTOSTERONE DECREASED
     Dosage: 4 PUMPS DAILY
     Dates: start: 201401, end: 2014
  6. ANDROGEL [Suspect]
     Active Substance: TESTOSTERONE
     Dosage: 3 PUMPS DAILY
     Route: 061
     Dates: start: 201406
  7. LISINOPRIL. [Concomitant]
     Active Substance: LISINOPRIL
     Indication: HYPERTENSION
  8. FLONASE [Concomitant]
     Active Substance: FLUTICASONE PROPIONATE
     Indication: HYPERSENSITIVITY
  9. TRILEPTAL [Concomitant]
     Active Substance: OXCARBAZEPINE
     Indication: SCHIZOPHRENIA

REACTIONS (3)
  - Wrong technique in drug usage process [Not Recovered/Not Resolved]
  - Device issue [Not Recovered/Not Resolved]
  - Blood testosterone decreased [Not Recovered/Not Resolved]

NARRATIVE: CASE EVENT DATE: 2014
